FAERS Safety Report 7632273-6 (Version None)
Quarter: 2011Q3

REPORT INFORMATION
  Report Type: 
  Country: None (occurrence: None)
  Receive Date: 20110725
  Receipt Date: 20100712
  Transmission Date: 20111222
  Serious: No
  Sender: FDA-Public Use
  Company Number: US-BRISTOL-MYERS SQUIBB COMPANY-15188576

PATIENT
  Age: 57 Year
  Sex: Male

DRUGS (7)
  1. VERAPAMIL [Concomitant]
  2. BYSTOLIC [Concomitant]
  3. ASPIRIN [Concomitant]
  4. COUMADIN [Suspect]
  5. ZANTAC [Concomitant]
  6. ROGAINE [Concomitant]
  7. CRESTOR [Concomitant]

REACTIONS (1)
  - ALOPECIA [None]
